FAERS Safety Report 16423304 (Version 1)
Quarter: 2019Q2

REPORT INFORMATION
  Report Type: Spontaneous
  Country: US (occurrence: US)
  Receive Date: 20190612
  Receipt Date: 20190612
  Transmission Date: 20190711
  Serious: No
  Sender: FDA-Public Use
  Company Number: US-ASTRAZENECA-2019SE74213

PATIENT
  Age: 743 Month
  Sex: Male
  Weight: 111.1 kg

DRUGS (1)
  1. BYDUREON BCISE [Suspect]
     Active Substance: EXENATIDE
     Indication: BLOOD GLUCOSE ABNORMAL
     Route: 058
     Dates: start: 201903

REACTIONS (3)
  - Decreased appetite [Not Recovered/Not Resolved]
  - Needle issue [Unknown]
  - Injection site pain [Unknown]

NARRATIVE: CASE EVENT DATE: 201903
